FAERS Safety Report 25171643 (Version 1)
Quarter: 2025Q2

REPORT INFORMATION
  Report Type: Other
  Country: FR (occurrence: FR)
  Receive Date: 20250408
  Receipt Date: 20250408
  Transmission Date: 20250717
  Serious: Yes (Hospitalization)
  Sender: ZYDUS PHARM
  Company Number: None

PATIENT

DRUGS (3)
  1. RISPERIDONE [Suspect]
     Active Substance: RISPERIDONE
     Indication: Mental disorder
     Route: 048
     Dates: start: 20241101
  2. ELAPRASE [Suspect]
     Active Substance: IDURSULFASE
     Indication: Mucopolysaccharidosis II
     Route: 065
     Dates: start: 20250201
  3. ELAPRASE [Suspect]
     Active Substance: IDURSULFASE
     Route: 065
     Dates: start: 20250227

REACTIONS (3)
  - Abdominal rigidity [Not Recovered/Not Resolved]
  - Decreased appetite [Not Recovered/Not Resolved]
  - Distal intestinal obstruction syndrome [Not Recovered/Not Resolved]

NARRATIVE: CASE EVENT DATE: 20250308
